FAERS Safety Report 18724635 (Version 1)
Quarter: 2021Q1

REPORT INFORMATION
  Report Type: Spontaneous
  Country: US (occurrence: US)
  Receive Date: 20210109
  Receipt Date: 20210109
  Transmission Date: 20210419
  Serious: Yes (Disabling)
  Sender: FDA-Public Use
  Company Number: None

PATIENT
  Age: 79 Year
  Sex: Male
  Weight: 58.97 kg

DRUGS (15)
  1. CLOPIDOGREL [Concomitant]
     Active Substance: CLOPIDOGREL BISULFATE
  2. TERAZOSIN [Concomitant]
     Active Substance: TERAZOSIN HYDROCHLORIDE
  3. HYDRALAZINE [Concomitant]
     Active Substance: HYDRALAZINE HYDROCHLORIDE
  4. GARLIC. [Concomitant]
     Active Substance: GARLIC
  5. MAGNESIUM [Concomitant]
     Active Substance: MAGNESIUM
  6. ATORVASTATIN [Concomitant]
     Active Substance: ATORVASTATIN
  7. ISOSOSORBIDE [Concomitant]
  8. FUROSEMIDE. [Suspect]
     Active Substance: FUROSEMIDE
     Indication: FLUID RETENTION
     Route: 048
     Dates: start: 20170717
  9. FUROSEMIDE. [Concomitant]
     Active Substance: FUROSEMIDE
  10. VITAMIN E [Concomitant]
     Active Substance: .ALPHA.-TOCOPHEROL
  11. VITAMIN B COMPLEX [Concomitant]
     Active Substance: CYANOCOBALAMIN\DEXPANTHENOL\NIACINAMIDE\PYRIDOXINE HYDROCHLORIDE\RIBOFLAVIN 5^-PHOSPHATE SODIUM\THIAMINE HYDROCHLORIDE\VITAMIN B COMPLEX
  12. CARVEDILOL. [Concomitant]
     Active Substance: CARVEDILOL
  13. XARELTO [Concomitant]
     Active Substance: RIVAROXABAN
  14. FISH OIL [Concomitant]
     Active Substance: FISH OIL
  15. CENTRUM [Concomitant]
     Active Substance: VITAMINS

REACTIONS (1)
  - Renal pain [None]

NARRATIVE: CASE EVENT DATE: 20190314
